FAERS Safety Report 7820713-9 (Version None)
Quarter: 2011Q4

REPORT INFORMATION
  Report Type: 
  Country: None (occurrence: None)
  Receive Date: 20111013
  Receipt Date: 20110929
  Transmission Date: 20120403
  Serious: Yes (Hospitalization)
  Sender: FDA-Public Use
  Company Number: 2011MA014716

PATIENT
  Age: 72 Year
  Sex: Female

DRUGS (8)
  1. DIAZEPAM [Suspect]
     Indication: SCIATICA
     Dosage: ;PO
     Route: 048
     Dates: end: 20110624
  2. ATACAND [Concomitant]
  3. PAREGORIC LIQUID USP (ALPHARMA) (PAREGORIC) [Suspect]
     Indication: ANALGESIC THERAPY
     Dates: start: 20110625, end: 20110626
  4. IMDUR [Concomitant]
  5. METFORMIN HCL [Concomitant]
  6. TRAMADOL HYDROCHLORIDE [Suspect]
     Indication: SCIATICA
     Dosage: ;PO
     Route: 048
     Dates: end: 20110624
  7. ACETAMINOPHEN [Concomitant]
  8. INSULIN [Concomitant]

REACTIONS (4)
  - ANXIETY [None]
  - DIZZINESS [None]
  - CONFUSIONAL STATE [None]
  - FALL [None]
